FAERS Safety Report 12238839 (Version 1)
Quarter: 2016Q2

REPORT INFORMATION
  Report Type: Spontaneous
  Country: US (occurrence: US)
  Receive Date: 20160405
  Receipt Date: 20160405
  Transmission Date: 20160815
  Serious: No
  Sender: FDA-Public Use
  Company Number: US-BAYER-2016-064142

PATIENT
  Age: 41 Year
  Sex: Male

DRUGS (1)
  1. ULTRAVIST [Suspect]
     Active Substance: IOPROMIDE
     Indication: COMPUTERISED TOMOGRAM THORAX
     Dosage: 100 CC ONCE
     Route: 042
     Dates: start: 20160401, end: 20160401

REACTIONS (3)
  - Ocular hyperaemia [None]
  - Lacrimation increased [None]
  - Sneezing [None]

NARRATIVE: CASE EVENT DATE: 20160401
